FAERS Safety Report 13444332 (Version 1)
Quarter: 2017Q2

REPORT INFORMATION
  Report Type: Spontaneous
  Country: None (occurrence: IT)
  Receive Date: 20170414
  Receipt Date: 20170414
  Transmission Date: 20170830
  Serious: Yes (Hospitalization)
  Sender: FDA-Public Use
  Company Number: IT-MEDAC PHARMA, INC.-1065385

PATIENT
  Age: 38 Year
  Sex: Female

DRUGS (2)
  1. METHOTREXATE (METHOTREXATE SODIUM) [Suspect]
     Active Substance: METHOTREXATE SODIUM
     Indication: ANKYLOSING SPONDYLITIS
     Route: 058
     Dates: start: 20160405, end: 20170304
  2. REMSIMA [Suspect]
     Active Substance: INFLIXIMAB
     Route: 042
     Dates: start: 20160405, end: 20170304

REACTIONS (2)
  - Haemoptysis [Recovered/Resolved]
  - Product use issue [None]

NARRATIVE: CASE EVENT DATE: 20170307
